FAERS Safety Report 7434072-7 (Version None)
Quarter: 2011Q2

REPORT INFORMATION
  Report Type: 
  Country: None (occurrence: None)
  Receive Date: 20110421
  Receipt Date: 20110421
  Transmission Date: 20111010
  Serious: Yes (Other)
  Sender: FDA-Public Use
  Company Number: None

PATIENT
  Age: 66 Year
  Sex: Female

DRUGS (5)
  1. TRAZODONE HCL [Concomitant]
  2. TRAMADOL HCL [Suspect]
     Indication: INTERVERTEBRAL DISC PROTRUSION
     Dosage: 1-2 TABLETS, UP TO 2 X PER DAY
     Dates: start: 20110413, end: 20110413
  3. TRAMADOL HCL [Suspect]
     Indication: BURSITIS
     Dosage: 1-2 TABLETS, UP TO 2 X PER DAY
     Dates: start: 20110413, end: 20110413
  4. TRAMADOL HCL [Suspect]
     Indication: INTERVERTEBRAL DISC PROTRUSION
     Dosage: 1-2 TABLETS, UP TO 2 X PER DAY
     Dates: start: 20110409
  5. TRAMADOL HCL [Suspect]
     Indication: BURSITIS
     Dosage: 1-2 TABLETS, UP TO 2 X PER DAY
     Dates: start: 20110409

REACTIONS (4)
  - MUSCLE SPASMS [None]
  - VOMITING [None]
  - NAUSEA [None]
  - DIARRHOEA [None]
